FAERS Safety Report 6619702-1 (Version None)
Quarter: 2010Q1

REPORT INFORMATION
  Report Type: 
  Country: None (occurrence: None)
  Receive Date: 20100303
  Receipt Date: 20100219
  Transmission Date: 20100710
  Serious: Yes (Hospitalization)
  Sender: FDA-Public Use
  Company Number: 007758

PATIENT
  Sex: Male

DRUGS (2)
  1. CERTOLIZUMAB PEGOL [Suspect]
     Indication: CROHN'S DISEASE
     Dosage: 400 MG 1X/2 WEEKS, C87085 SUBCUTANEOUS; 400 MG 1X/2 WEEKS SUBCUTANEOUS; R00 MG 1X/MONTH SUBCUTANEOUS
     Route: 058
     Dates: start: 20090602, end: 20090701
  2. CERTOLIZUMAB PEGOL [Suspect]
     Indication: CROHN'S DISEASE
     Dosage: 400 MG 1X/2 WEEKS, C87085 SUBCUTANEOUS; 400 MG 1X/2 WEEKS SUBCUTANEOUS; R00 MG 1X/MONTH SUBCUTANEOUS
     Route: 058
     Dates: start: 20090701

REACTIONS (2)
  - FACIAL BONES FRACTURE [None]
  - VICTIM OF CRIME [None]
